FAERS Safety Report 9277720 (Version 1)
Quarter: 2013Q2

REPORT INFORMATION
  Report Type: Spontaneous
  Country: US (occurrence: None)
  Receive Date: 20130503
  Receipt Date: 20130503
  Transmission Date: 20140414
  Serious: Yes (Other)
  Sender: FDA-Public Use
  Company Number: None

PATIENT
  Age: 35 Year
  Sex: Female
  Weight: 52.62 kg

DRUGS (3)
  1. LISINOPRIL [Suspect]
     Indication: HYPERTENSION
     Dosage: ONE HALF TABLET
     Route: 048
     Dates: start: 20120306, end: 20130223
  2. FLUCONAZOLE [Concomitant]
  3. HYDROXYCHLOROQUINE [Concomitant]

REACTIONS (3)
  - Paraesthesia oral [None]
  - Lip swelling [None]
  - Drug effect decreased [None]
